FAERS Safety Report 19748775 (Version 2)
Quarter: 2025Q1

REPORT INFORMATION
  Report Type: Report from Study
  Country: US (occurrence: US)
  Receive Date: 20210826
  Receipt Date: 20250213
  Transmission Date: 20250408
  Serious: Yes (Other)
  Sender: ROCHE
  Company Number: US-ROCHE-2893780

PATIENT

DRUGS (7)
  1. RITUXIMAB [Suspect]
     Active Substance: RITUXIMAB
     Indication: Chronic lymphocytic leukaemia refractory
     Route: 065
  2. VENETOCLAX [Suspect]
     Active Substance: VENETOCLAX
     Indication: Chronic lymphocytic leukaemia refractory
     Route: 065
  3. IBRUTINIB [Suspect]
     Active Substance: IBRUTINIB
     Indication: Chronic lymphocytic leukaemia refractory
     Route: 065
  4. IDELALISIB [Suspect]
     Active Substance: IDELALISIB
     Indication: Chronic lymphocytic leukaemia refractory
     Route: 065
  5. BENDAMUSTINE [Suspect]
     Active Substance: BENDAMUSTINE
     Indication: Chronic lymphocytic leukaemia refractory
     Route: 065
  6. FLUDARABINE [Suspect]
     Active Substance: FLUDARABINE PHOSPHATE
     Indication: Chronic lymphocytic leukaemia refractory
     Route: 065
  7. CYCLOPHOSPHAMIDE [Suspect]
     Active Substance: CYCLOPHOSPHAMIDE
     Indication: Chronic lymphocytic leukaemia refractory
     Route: 065

REACTIONS (49)
  - Cytopenia [Unknown]
  - Pancytopenia [Unknown]
  - Neutropenia [Unknown]
  - Thrombocytopenia [Unknown]
  - Platelet count decreased [Unknown]
  - Anaemia [Unknown]
  - Diarrhoea [Unknown]
  - Fatigue [Unknown]
  - Rash [Unknown]
  - Atrial fibrillation [Unknown]
  - Arrhythmia [Unknown]
  - Atrial flutter [Unknown]
  - Pneumonia [Unknown]
  - Infection [Unknown]
  - Upper respiratory tract infection [Unknown]
  - Urinary tract infection [Unknown]
  - Sepsis [Unknown]
  - Aspergillus infection [Unknown]
  - Cellulitis [Unknown]
  - Sinusitis [Unknown]
  - Skin lesion [Unknown]
  - Pyrexia [Unknown]
  - Influenza like illness [Unknown]
  - Haemorrhage [Unknown]
  - Epistaxis [Unknown]
  - Gastrointestinal haemorrhage [Unknown]
  - Haematuria [Unknown]
  - Renal haemorrhage [Unknown]
  - Haemoptysis [Unknown]
  - Conjunctival haemorrhage [Unknown]
  - Spinal epidural haemorrhage [Unknown]
  - Pulmonary alveolar haemorrhage [Unknown]
  - Subdural haematoma [Unknown]
  - Contusion [Unknown]
  - Ecchymosis [Unknown]
  - Blood blister [Unknown]
  - Petechiae [Unknown]
  - Haemothorax [Unknown]
  - Arthralgia [Unknown]
  - Myalgia [Unknown]
  - Arthritis [Unknown]
  - Motor dysfunction [Unknown]
  - Muscular weakness [Unknown]
  - Asthenia [Unknown]
  - Musculoskeletal disorder [Unknown]
  - Musculoskeletal pain [Unknown]
  - Muscle spasms [Unknown]
  - Pain [Unknown]
  - Pain [Unknown]
